FAERS Safety Report 17139396 (Version 1)
Quarter: 2019Q4

REPORT INFORMATION
  Report Type: Spontaneous
  Country: US (occurrence: US)
  Receive Date: 20191210
  Receipt Date: 20191210
  Transmission Date: 20200122
  Serious: Yes (Death)
  Sender: FDA-Public Use
  Company Number: None

PATIENT
  Age: 86 Year
  Sex: Female

DRUGS (11)
  1. MAGNESIUM-OX TAB 400MG [Concomitant]
     Dates: start: 20191002, end: 20191125
  2. SLOW-MAG TAB [Concomitant]
     Dates: start: 20190917, end: 20191125
  3. WARFARIN TAB 5MG [Concomitant]
     Dates: start: 20190624, end: 20191125
  4. ATORVASTATIN TAB 10MG [Concomitant]
     Dates: start: 20190924, end: 20191125
  5. ESOMEPRA MAG CAP 40 MG DR [Concomitant]
     Dates: start: 20190907, end: 20191125
  6. LEVOTHYROXIN TAB 100MCG [Concomitant]
     Dates: start: 20190930, end: 20191125
  7. PAROXETINE TAB 20MG [Concomitant]
     Dates: start: 20190725, end: 20191125
  8. DOFETILIDE. [Suspect]
     Active Substance: DOFETILIDE
     Indication: ANAEMIA
     Dosage: ?          OTHER FREQUENCY:2X DAILY W2X 250MG;?
     Route: 048
     Dates: start: 20180329, end: 20191125
  9. WARFARIN TAB 5MG [Concomitant]
     Dates: start: 20190624, end: 20191125
  10. DOFETILIDE. [Suspect]
     Active Substance: DOFETILIDE
     Indication: ANAEMIA
     Dosage: ?          OTHER FREQUENCY:2X DAILY W2X 125MG;?
     Route: 048
     Dates: start: 20180329, end: 20191125
  11. ESOMEPRA MAG CAP 40 MG DR [Concomitant]
     Dates: start: 20190911, end: 20191125

REACTIONS (1)
  - Death [None]

NARRATIVE: CASE EVENT DATE: 20191125
